FAERS Safety Report 20873902 (Version 14)
Quarter: 2023Q4

REPORT INFORMATION
  Report Type: Spontaneous
  Country: US (occurrence: US)
  Receive Date: 20220525
  Receipt Date: 20231030
  Transmission Date: 20240110
  Serious: Yes (Other)
  Sender: FDA-Public Use
  Company Number: US-PFIZER INC-202200661766

PATIENT
  Age: 73 Year
  Sex: Female
  Weight: 78.02 kg

DRUGS (4)
  1. PRISTIQ EXTENDED-RELEASE [Suspect]
     Active Substance: DESVENLAFAXINE SUCCINATE
     Indication: Depression
     Dosage: 50 MG, 1X/DAY (IN THE MORNING)
     Dates: end: 202301
  2. PRISTIQ EXTENDED-RELEASE [Suspect]
     Active Substance: DESVENLAFAXINE SUCCINATE
     Indication: Anxiety
     Dosage: 50 MG, 1X/DAY
     Route: 048
  3. PRISTIQ EXTENDED-RELEASE [Suspect]
     Active Substance: DESVENLAFAXINE SUCCINATE
     Indication: Panic attack
  4. CREON [Concomitant]
     Active Substance: PANCRELIPASE AMYLASE\PANCRELIPASE LIPASE\PANCRELIPASE PROTEASE

REACTIONS (30)
  - Cardiac fibrillation [Unknown]
  - Blood pressure increased [Not Recovered/Not Resolved]
  - Fall [Unknown]
  - Drug dependence [Unknown]
  - Limb injury [Unknown]
  - Product dispensing error [Unknown]
  - Dyslexia [Unknown]
  - Dizziness [Unknown]
  - Dyspepsia [Unknown]
  - Vomiting [Unknown]
  - Diarrhoea [Unknown]
  - Visual impairment [Unknown]
  - Night sweats [Unknown]
  - Withdrawal syndrome [Unknown]
  - Headache [Unknown]
  - Brain fog [Unknown]
  - Nausea [Unknown]
  - Condition aggravated [Unknown]
  - Gait inability [Unknown]
  - Arthritis [Not Recovered/Not Resolved]
  - Palpitations [Unknown]
  - Anxiety [Unknown]
  - Blood pressure fluctuation [Unknown]
  - Panic attack [Unknown]
  - Respiration abnormal [Unknown]
  - Post-acute COVID-19 syndrome [Unknown]
  - Hearing disability [Unknown]
  - Dysstasia [Unknown]
  - Illness [Unknown]
  - Communication disorder [Unknown]
